FAERS Safety Report 12466669 (Version 1)
Quarter: 2016Q2

REPORT INFORMATION
  Report Type: Spontaneous
  Country: US (occurrence: US)
  Receive Date: 20160615
  Receipt Date: 20160615
  Transmission Date: 20160815
  Serious: No
  Sender: FDA-Public Use
  Company Number: US-GLENMARK PHARMACEUTICALS INC, USA.-2016GMK022241

PATIENT

DRUGS (2)
  1. DESMOPRESSIN ACETATE TABLETS [Suspect]
     Active Substance: DESMOPRESSIN ACETATE
     Indication: BLADDER DISORDER
     Dosage: 0.2 MG, TWO TABLETS ONCE DAILY
     Route: 048
     Dates: start: 201512
  2. HYDROCORTISONE. [Concomitant]
     Active Substance: HYDROCORTISONE
     Indication: PROPHYLAXIS
     Dosage: UNK, QD
     Route: 048
     Dates: start: 2009

REACTIONS (3)
  - Drug ineffective for unapproved indication [Not Recovered/Not Resolved]
  - Product substitution issue [None]
  - Product substitution issue [Not Recovered/Not Resolved]

NARRATIVE: CASE EVENT DATE: 201512
